FAERS Safety Report 11047004 (Version 3)
Quarter: 2015Q3

REPORT INFORMATION
  Report Type: Spontaneous
  Country: US (occurrence: US)
  Receive Date: 20150420
  Receipt Date: 20150729
  Transmission Date: 20151125
  Serious: Yes (Hospitalization)
  Sender: FDA-Public Use
  Company Number: US-BAYER-2015-142065

PATIENT
  Age: 24 Year
  Sex: Female
  Weight: 66 kg

DRUGS (2)
  1. MIRENA [Suspect]
     Active Substance: LEVONORGESTREL
     Indication: CONTRACEPTION
     Dosage: 20 MCG/24HR, CONT
     Route: 015
     Dates: start: 20071010, end: 20090701
  2. ADDERALL [Concomitant]
     Active Substance: AMPHETAMINE ASPARTATE\AMPHETAMINE SULFATE\DEXTROAMPHETAMINE SACCHARATE\DEXTROAMPHETAMINE SULFATE
     Indication: ATTENTION DEFICIT/HYPERACTIVITY DISORDER
     Dosage: 60 MG, QD
     Route: 048
     Dates: start: 1995

REACTIONS (9)
  - Depression [None]
  - Injury [None]
  - Device issue [None]
  - Pelvic pain [None]
  - Procedural pain [None]
  - Nausea [None]
  - Anxiety [None]
  - Uterine perforation [None]
  - Diarrhoea [None]

NARRATIVE: CASE EVENT DATE: 20090628
